FAERS Safety Report 7092679-3 (Version None)
Quarter: 2010Q4

REPORT INFORMATION
  Report Type: 
  Country: None (occurrence: None)
  Receive Date: 20101110
  Receipt Date: 20100413
  Transmission Date: 20110411
  Serious: No
  Sender: FDA-Public Use
  Company Number: US-KINGPHARMUSA00001-K201000441

PATIENT
  Age: 47 Year
  Sex: Male
  Weight: 117.91 kg

DRUGS (1)
  1. PRALIDOXIME CHLORIDE [Suspect]
     Dosage: UNK, SINGLE
     Dates: start: 20080101, end: 20080101

REACTIONS (2)
  - ACCIDENTAL EXPOSURE [None]
  - MYALGIA [None]
